FAERS Safety Report 4608802-3 (Version None)
Quarter: 2005Q1

REPORT INFORMATION
  Report Type: 
  Country: None (occurrence: None)
  Receive Date: 20050315
  Receipt Date: 20050222
  Transmission Date: 20050727
  Serious: Yes (Other)
  Sender: FDA-Public Use
  Company Number: AU-GLAXOSMITHKLINE-B0372870A

PATIENT
  Age: 58 Year
  Sex: Female

DRUGS (1)
  1. NICABATE CQ 21MG [Suspect]
     Dosage: 21MG SEE DOSAGE TEXT
     Route: 062
     Dates: start: 20030101, end: 20050101

REACTIONS (3)
  - DRUG ABUSER [None]
  - GASTRIC ULCER [None]
  - MEDICATION ERROR [None]
